FAERS Safety Report 8793716 (Version 2)
Quarter: 2012Q4

REPORT INFORMATION
  Report Type: 
  Country: JP (occurrence: JP)
  Receive Date: 20120918
  Receipt Date: 20121001
  Transmission Date: 20130627
  Serious: Yes (Other)
  Sender: FDA-Public Use
  Company Number: JP-BRISTOL-MYERS SQUIBB COMPANY-16975872

PATIENT
  Age: 31 Year
  Sex: Female

DRUGS (3)
  1. ABILIFY [Suspect]
     Indication: SCHIZOPHRENIA
     Dosage: 18 mg, 24 mg, 30 mg, 24 mg, 12 mg. All tablet form
     Route: 048
  2. OLANZAPINE [Concomitant]
  3. FLUVOXAMINE MALEATE [Concomitant]

REACTIONS (5)
  - Hyperacusis [Unknown]
  - Anxiety [Recovered/Resolved]
  - Middle insomnia [Recovered/Resolved]
  - Persecutory delusion [Recovered/Resolved]
  - Thought withdrawal [Recovered/Resolved]
